FAERS Safety Report 13677029 (Version 1)
Quarter: 2017Q2

REPORT INFORMATION
  Report Type: Spontaneous
  Country: PL (occurrence: PL)
  Receive Date: 20170622
  Receipt Date: 20170622
  Transmission Date: 20170830
  Serious: Yes (Other)
  Sender: FDA-Public Use
  Company Number: PL-APOTEX-2017AP013279

PATIENT
  Age: 39 Year
  Sex: Female

DRUGS (7)
  1. VITAMIN B6 [Concomitant]
     Active Substance: PYRIDOXINE HYDROCHLORIDE
     Indication: SCHIZOPHRENIA
  2. OLANZAPINE APOTEX [Suspect]
     Active Substance: OLANZAPINE
     Indication: SCHIZOPHRENIA
     Route: 065
  3. RISPERIDONE. [Suspect]
     Active Substance: RISPERIDONE
     Indication: SCHIZOPHRENIA
     Route: 065
  4. APOTIAPINA [Suspect]
     Active Substance: QUETIAPINE
     Indication: SCHIZOPHRENIA
     Dosage: 100 MG, QD
     Route: 065
  5. CLOZAPINE. [Suspect]
     Active Substance: CLOZAPINE
     Indication: SCHIZOPHRENIA
  6. VITAMIN E                          /00110501/ [Concomitant]
     Active Substance: TOCOPHEROL
     Indication: SCHIZOPHRENIA
  7. LORAZEPAM. [Concomitant]
     Active Substance: LORAZEPAM
     Indication: SCHIZOPHRENIA

REACTIONS (3)
  - Tardive dyskinesia [Unknown]
  - Deformity [Unknown]
  - Facial asymmetry [Unknown]
